APPROVED DRUG PRODUCT: BOSENTAN
Active Ingredient: BOSENTAN
Strength: 125MG
Dosage Form/Route: TABLET;ORAL
Application: A206987 | Product #002
Applicant: NATCO PHARMA LTD
Approved: Apr 26, 2019 | RLD: No | RS: No | Type: DISCN